FAERS Safety Report 8151916-4 (Version None)
Quarter: 2012Q1

REPORT INFORMATION
  Report Type: 
  Country: None (occurrence: None)
  Receive Date: 20120221
  Receipt Date: 20120216
  Transmission Date: 20120608
  Serious: Yes (Other)
  Sender: FDA-Public Use
  Company Number: US-PFIZER INC-2011079326

PATIENT
  Sex: Female
  Weight: 125.62 kg

DRUGS (4)
  1. LYRICA [Suspect]
     Dosage: 150 MG, 2X/DAY
     Route: 048
     Dates: start: 20110101, end: 20111101
  2. LYRICA [Suspect]
     Indication: FIBROMYALGIA
     Dosage: 150 MG DAILY
     Route: 048
     Dates: start: 20110401, end: 20110101
  3. HYDROCODONE [Concomitant]
     Indication: PAIN
     Dosage: 10/325 MG 4 TIMES A DAY
  4. LYRICA [Suspect]
     Dosage: 150 MG, 2X/DAY
     Route: 048
     Dates: start: 20120119

REACTIONS (7)
  - FEELING ABNORMAL [None]
  - FATIGUE [None]
  - JOINT SWELLING [None]
  - NERVOUSNESS [None]
  - SOMNOLENCE [None]
  - PAIN [None]
  - DEPRESSION [None]
